FAERS Safety Report 7756003-2 (Version None)
Quarter: 2011Q3

REPORT INFORMATION
  Report Type: 
  Country: None (occurrence: None)
  Receive Date: 20110916
  Receipt Date: 20110915
  Transmission Date: 20111222
  Serious: Yes (Hospitalization)
  Sender: FDA-Public Use
  Company Number: JP-PFIZER INC-2011195668

PATIENT
  Age: 66 Year
  Sex: Female
  Weight: 55 kg

DRUGS (5)
  1. VANCOMYCIN [Concomitant]
     Indication: MEDIASTINITIS
     Dosage: 0.75 G, 2X/DAY
     Route: 042
     Dates: start: 20100806, end: 20100807
  2. LINEZOLID [Suspect]
     Indication: STAPHYLOCOCCAL INFECTION
     Dosage: 600 MG, 2X/DAY
     Route: 065
     Dates: start: 20100806
  3. RIFAMPICIN [Concomitant]
     Indication: STAPHYLOCOCCAL INFECTION
     Dosage: 450 MG, 1X/DAY
     Route: 048
     Dates: start: 20100806
  4. MINOCYCLINE HCL [Concomitant]
     Indication: STAPHYLOCOCCAL INFECTION
     Dosage: 100 MG, 2X/DAY
     Route: 065
     Dates: start: 20100806
  5. TAICEZOLIN [Concomitant]
     Indication: MEDIASTINITIS
     Dosage: 1 G, 3X/DAY
     Route: 042
     Dates: start: 20100804, end: 20100805

REACTIONS (2)
  - BLOOD BILIRUBIN INCREASED [None]
  - PLATELET COUNT DECREASED [None]
